FAERS Safety Report 13590597 (Version 1)
Quarter: 2017Q2

REPORT INFORMATION
  Report Type: Report from Study
  Country: US (occurrence: US)
  Receive Date: 20170530
  Receipt Date: 20170530
  Transmission Date: 20170830
  Serious: Yes (Hospitalization)
  Sender: FDA-Public Use
  Company Number: US-INGENUS PHARMACEUTICALS NJ, LLC-ING201705-000282

PATIENT
  Sex: Male

DRUGS (1)
  1. PHENTERMINE HYDROCHLORIDE. [Suspect]
     Active Substance: PHENTERMINE HYDROCHLORIDE

REACTIONS (3)
  - Chest pain [Unknown]
  - Intentional product misuse [Unknown]
  - Dyspnoea [Unknown]
